FAERS Safety Report 7773912-9 (Version None)
Quarter: 2011Q3

REPORT INFORMATION
  Report Type: 
  Country: None (occurrence: None)
  Receive Date: 20110923
  Receipt Date: 20110919
  Transmission Date: 20111222
  Serious: Yes (Other)
  Sender: FDA-Public Use
  Company Number: US-CEPHALON-2009001663

PATIENT
  Sex: Male
  Weight: 101 kg

DRUGS (7)
  1. BACLOFEN [Concomitant]
  2. TOFRANIL [Concomitant]
     Indication: DEPRESSION
  3. FENTORA [Suspect]
     Indication: BACK PAIN
     Route: 002
     Dates: start: 20080301
  4. MORPHINE SULFATE [Concomitant]
     Indication: BACK PAIN
     Dates: start: 19950101
  5. MS CONTIN [Concomitant]
     Indication: BACK PAIN
     Dates: start: 19950101
  6. PRIALT [Concomitant]
     Indication: BACK PAIN
     Route: 037
     Dates: start: 19950101
  7. ATIVAN [Concomitant]
     Indication: ANXIETY
     Dates: start: 19950101

REACTIONS (3)
  - DRY MOUTH [None]
  - DRUG PRESCRIBING ERROR [None]
  - DENTAL CARIES [None]
